FAERS Safety Report 21054655 (Version 1)
Quarter: 2022Q3

REPORT INFORMATION
  Report Type: Report from Study
  Country: JP (occurrence: JP)
  Receive Date: 20220707
  Receipt Date: 20220707
  Transmission Date: 20221026
  Serious: Yes (Other)
  Sender: FDA-Public Use
  Company Number: JP-CELGENE-JPN-20190901112

PATIENT
  Age: 69 Year
  Sex: Male
  Weight: 66.2 kg

DRUGS (39)
  1. RITUXIMAB [Suspect]
     Active Substance: RITUXIMAB
     Indication: Diffuse large B-cell lymphoma
     Dosage: LAST DOSE ADMINISTERED ON 20-OCT-2016??FREQUENCY TEXT: UNKNOWN
     Route: 065
     Dates: start: 20160706
  2. RITUXIMAB [Suspect]
     Active Substance: RITUXIMAB
     Dosage: FREQUENCY TEXT: UNKNOWN?UNKNOWN
     Route: 065
     Dates: start: 20190402, end: 20190604
  3. DOXORUBICIN [Suspect]
     Active Substance: DOXORUBICIN
     Indication: Diffuse large B-cell lymphoma
     Dosage: FREQUENCY TEXT: UNKNOWN
     Route: 065
     Dates: start: 20160706, end: 20161020
  4. DOXORUBICIN [Suspect]
     Active Substance: DOXORUBICIN
     Dosage: FREQUENCY TEXT: UNKNOWN?UNKNOWN
     Route: 065
     Dates: start: 20190909
  5. CYCLOPHOSPHAMIDE [Suspect]
     Active Substance: CYCLOPHOSPHAMIDE
     Indication: Diffuse large B-cell lymphoma
     Dosage: FREQUENCY TEXT: UNKNOWN
     Route: 065
     Dates: start: 20160706, end: 20161020
  6. CYCLOPHOSPHAMIDE [Suspect]
     Active Substance: CYCLOPHOSPHAMIDE
     Dosage: FREQUENCY TEXT: UNKNOWN?UNKNOWN
     Route: 065
     Dates: start: 20190402, end: 20190604
  7. VINCRISTINE [Suspect]
     Active Substance: VINCRISTINE
     Indication: Diffuse large B-cell lymphoma
     Dosage: FREQUENCY TEXT: UNKNOWN
     Route: 065
     Dates: start: 20160706, end: 20161020
  8. PREDNISONE [Suspect]
     Active Substance: PREDNISONE
     Indication: Diffuse large B-cell lymphoma
     Dosage: FREQUENCY TEXT: UNKNOWN
     Route: 065
     Dates: start: 20160706, end: 20161024
  9. cilastatin sodium, imipenem hydrate [Concomitant]
     Indication: Pyrexia
     Dosage: 1.5 GRAM
     Route: 042
     Dates: start: 20190803, end: 20190808
  10. cilastatin sodium, imipenem hydrate [Concomitant]
     Route: 042
     Dates: start: 20190830
  11. betamethasone d-chlorpheniramine maleate [Concomitant]
     Indication: Urticaria
     Dosage: 1 DF= 1 TABLET
     Route: 048
     Dates: start: 20190628, end: 20190813
  12. NAPROXEN [Concomitant]
     Active Substance: NAPROXEN
     Indication: Pyrexia
     Dosage: 300 MILLIGRAM
     Route: 048
     Dates: start: 20190731, end: 20190807
  13. MINOCYCLINE HYDROCHLORIDE [Concomitant]
     Active Substance: MINOCYCLINE HYDROCHLORIDE
     Indication: Pyrexia
     Dosage: 100 MILLIGRAM
     Route: 048
     Dates: start: 20190806, end: 20190827
  14. CELECOXIB [Concomitant]
     Active Substance: CELECOXIB
     Indication: Pyrexia
     Dosage: 200 MILLIGRAM
     Route: 048
     Dates: start: 20190807, end: 20190819
  15. ZOLPIDEM TARTRATE [Concomitant]
     Active Substance: ZOLPIDEM TARTRATE
     Indication: Insomnia
     Dosage: 5 MILLIGRAM
     Route: 048
     Dates: start: 20180404
  16. TELMISARTAN [Concomitant]
     Active Substance: TELMISARTAN
     Indication: Hypertension
     Dosage: 40 MILLIGRAM
     Route: 048
     Dates: start: 20190326, end: 20190827
  17. REBAMIPIDE [Concomitant]
     Active Substance: REBAMIPIDE
     Indication: Gastritis prophylaxis
     Dosage: 300 MILLIGRAM
     Route: 048
     Dates: start: 201901
  18. PANTETHINE [Concomitant]
     Active Substance: PANTETHINE
     Indication: Constipation prophylaxis
     Dosage: 300 MILLIGRAM
     Route: 048
     Dates: start: 20160803
  19. MAGNESIUM OXIDE [Concomitant]
     Active Substance: MAGNESIUM OXIDE
     Indication: Constipation prophylaxis
     Dosage: 990 MILLIGRAM
     Route: 048
     Dates: start: 20160803
  20. LOXOPROFEN SODIUM DIHYDRATE [Concomitant]
     Active Substance: LOXOPROFEN SODIUM DIHYDRATE
     Indication: Pyrexia
     Dosage: 180 MILLIGRAM
     Route: 048
     Dates: start: 20190819
  21. SODIUM GUALENATE MONOHYDRATE [Concomitant]
     Active Substance: SODIUM GUALENATE MONOHYDRATE
     Indication: Infection prophylaxis
     Dosage: FREQUENCY TEXT: AS NEEDED
     Route: 061
     Dates: start: 201904
  22. PENTAZOCINE [Concomitant]
     Active Substance: PENTAZOCINE
     Indication: Premedication
     Dosage: 15 MILLIGRAM
     Route: 042
     Dates: start: 20190821, end: 20190821
  23. CARBAZOCHROME SODIUM SULFONATE [Concomitant]
     Active Substance: CARBAZOCHROME SODIUM SULFONATE
     Indication: Premedication
     Dosage: 50 MILLIGRAM
     Route: 042
     Dates: start: 20190821, end: 20190821
  24. CARBAZOCHROME SODIUM SULFONATE [Concomitant]
     Active Substance: CARBAZOCHROME SODIUM SULFONATE
     Indication: Lower gastrointestinal haemorrhage
     Dosage: 100 MILLIGRAM
     Route: 042
     Dates: start: 20190829
  25. CEFTAZIDIME [Concomitant]
     Active Substance: CEFTAZIDIME
     Indication: Pyrexia
     Dosage: 4 GRAM
     Route: 042
     Dates: start: 20190823, end: 20190829
  26. AMINO ACIDS\DEXTROSE\ELECTROLYTES NOS\VITAMINS [Concomitant]
     Active Substance: AMINO ACIDS\DEXTROSE\ELECTROLYTES NOS\VITAMINS
     Indication: Product used for unknown indication
     Dosage: 1000 MILLILITER
     Route: 042
     Dates: start: 20190824, end: 20190824
  27. FUROSEMIDE [Concomitant]
     Active Substance: FUROSEMIDE
     Indication: Weight increased
     Dosage: FREQUENCY TEXT: AS NEEDED
     Route: 042
     Dates: start: 20190825, end: 20190825
  28. FULCALIQ [Concomitant]
     Active Substance: AMINO ACIDS\CARBOHYDRATES\ELECTROLYTES NOS\VITAMINS
     Indication: Decreased appetite
     Dosage: 1354.5 MILLILITER
     Route: 042
     Dates: start: 20190827, end: 20190828
  29. FULCALIQ [Concomitant]
     Active Substance: AMINO ACIDS\CARBOHYDRATES\ELECTROLYTES NOS\VITAMINS
     Indication: Decreased appetite
     Dosage: 1003 TO 1504.5 MILLILITER
     Route: 042
     Dates: start: 20190829
  30. PREDNISOLONE [Concomitant]
     Active Substance: PREDNISOLONE
     Indication: Pyrexia
     Route: 048
     Dates: start: 20190822
  31. BETAMETHASONE VALERATE [Concomitant]
     Active Substance: BETAMETHASONE VALERATE
     Indication: Urticaria
     Dosage: FREQUENCY TEXT: AS NEEDED
     Route: 061
     Dates: start: 20190821
  32. ACETAZOLAMIDE [Concomitant]
     Active Substance: ACETAZOLAMIDE
     Indication: Oedema
     Dosage: 250 MILLIGRAM
     Route: 048
     Dates: start: 20190827
  33. LANSOPRAZOLE [Concomitant]
     Active Substance: LANSOPRAZOLE
     Indication: Gastritis prophylaxis
     Dosage: 15 MILLIGRAM
     Route: 048
     Dates: start: 20190827
  34. SODIUM PICOSULFATE [Concomitant]
     Active Substance: SODIUM PICOSULFATE
     Indication: Premedication
     Dosage: 5 MILLILITER
     Route: 048
     Dates: start: 20190828, end: 20190828
  35. MOVIPREP [Concomitant]
     Active Substance: ASCORBIC ACID\POLYETHYLENE GLYCOL 3350\POTASSIUM CHLORIDE\SODIUM ASCORBATE\SODIUM CHLORIDE\SODIUM SU
     Indication: Premedication
     Dosage: 1500 MILLILITER
     Route: 048
     Dates: start: 20190828, end: 20190828
  36. ETOPOSIDE [Concomitant]
     Active Substance: ETOPOSIDE
     Indication: Diffuse large B-cell lymphoma
     Dosage: FREQUENCY TEXT: UNKNOWN?UNKNOWN
     Route: 065
     Dates: start: 20190402, end: 20190604
  37. CYTARABINE [Concomitant]
     Active Substance: CYTARABINE
     Indication: Diffuse large B-cell lymphoma
     Dosage: FREQUENCY TEXT: UNKNOWN?UNKNOWN
     Route: 065
     Dates: start: 20190402, end: 20190604
  38. DEXAMETHASONE [Concomitant]
     Active Substance: DEXAMETHASONE
     Indication: Diffuse large B-cell lymphoma
     Dosage: FREQUENCY TEXT: UNKNOWN?UNKNOWN
     Route: 065
     Dates: start: 20190402, end: 20190604
  39. fluorodeoxyglucose [Concomitant]
     Indication: Premedication
     Dosage: FREQUENCY TEXT: UNKNOWN?UNKNOWN
     Route: 065
     Dates: start: 20190814, end: 20190814

REACTIONS (1)
  - Hodgkin^s disease [Not Recovered/Not Resolved]

NARRATIVE: CASE EVENT DATE: 20190902
